FAERS Safety Report 8506302 (Version 2)
Quarter: 2013Q1

REPORT INFORMATION
  Report Type: Spontaneous
  Country: FR (occurrence: None)
  Receive Date: 20120406
  Receipt Date: 20121017
  Transmission Date: 20140127
  Serious: Yes (Life-Threatening, Hospitalization, Other)
  Sender: FDA-Public Use
  Company Number: 2012000072

PATIENT
  Age: 62 Year
  Sex: Male

DRUGS (5)
  1. ACEON [Suspect]
     Indication: ACUTE CORONARY SYNDROME
     Dosage: 4 MG, QD, ORAL
     Route: 048
     Dates: start: 201105, end: 20110918
  2. ATORVASTATIN CALCIUM [Suspect]
     Indication: ACUTE CORONARY SYNDROME
     Dosage: 40 MG, QD, ORAL
     Route: 048
     Dates: start: 201105, end: 20110918
  3. TENORMIN [Suspect]
     Indication: ACUTE CORONARY SYNDROME
     Dosage: 50 MG, QD, ORAL
     Route: 048
     Dates: start: 201105
  4. PLAVIX [Suspect]
     Indication: ACUTE CORONARY SYNDROME
     Dosage: 75 MG, QD, ORAL
     Route: 048
     Dates: start: 201105, end: 20111004
  5. ASPIRIN [Concomitant]

REACTIONS (13)
  - Hepatitis fulminant [None]
  - Liver transplant [None]
  - Large intestine perforation [None]
  - Hepatic necrosis [None]
  - Hepatic fibrosis [None]
  - Platelet count decreased [None]
  - Post procedural complication [None]
  - Diarrhoea [None]
  - Cell death [None]
  - Hepatic failure [None]
  - Encephalopathy [None]
  - Ascites [None]
  - Renal mass [None]
